FAERS Safety Report 10124224 (Version 2)
Quarter: 2015Q1

REPORT INFORMATION
  Report Type: Other
  Country: US (occurrence: US)
  Receive Date: 20140427
  Receipt Date: 20150211
  Transmission Date: 20150720
  Serious: Yes (Hospitalization, Other)
  Sender: FDA-Public Use
  Company Number: US-GSKPPD-2014GSK023902

PATIENT
  Age: 59 Year
  Sex: Male

DRUGS (6)
  1. ECOTRIN [Concomitant]
     Active Substance: ASPIRIN
  2. AVANDIA [Suspect]
     Active Substance: ROSIGLITAZONE MALEATE
     Indication: DIABETES MELLITUS
     Route: 048
  3. COREG [Concomitant]
     Active Substance: CARVEDILOL
     Route: 048
  4. IMDUR [Concomitant]
     Active Substance: ISOSORBIDE MONONITRATE
     Route: 048
  5. LISINOPRIL. [Concomitant]
     Active Substance: LISINOPRIL
     Route: 048
  6. LASIX [Concomitant]
     Active Substance: FUROSEMIDE
     Route: 048

REACTIONS (1)
  - Acute myocardial infarction [Recovered/Resolved]

NARRATIVE: CASE EVENT DATE: 20040708
